FAERS Safety Report 5237511-5 (Version None)
Quarter: 2007Q1

REPORT INFORMATION
  Report Type: 
  Country: None (occurrence: None)
  Receive Date: 20070213
  Receipt Date: 20070205
  Transmission Date: 20070707
  Serious: Yes (Hospitalization)
  Sender: FDA-Public Use
  Company Number: US-ELI_LILLY_AND_COMPANY-US200702001021

PATIENT
  Age: 67 Year
  Sex: Female

DRUGS (3)
  1. HUMALOG [Suspect]
     Indication: DIABETES MELLITUS
     Dosage: UNK, UNKNOWN
  2. LANTUS [Concomitant]
     Dosage: UNK, UNKNOWN
  3. NOVOLIN R [Concomitant]
     Dosage: UNK, UNKNOWN

REACTIONS (1)
  - STENT PLACEMENT [None]
